FAERS Safety Report 8386466-3 (Version None)
Quarter: 2012Q2

REPORT INFORMATION
  Report Type: 
  Country: None (occurrence: None)
  Receive Date: 20120525
  Receipt Date: 20120514
  Transmission Date: 20120825
  Serious: Yes (Other)
  Sender: FDA-Public Use
  Company Number: GB-MYLANLABS-2012S1010160

PATIENT
  Age: 76 Year
  Sex: Female

DRUGS (8)
  1. METHOTREXATE [Suspect]
     Route: 042
  2. PAMIDRONIC ACID [Suspect]
     Dosage: 30MG EVERY 3 MONTHS
     Route: 042
  3. RABEPRAZOLE SODIUM [Suspect]
     Dosage: 20 MG/DAY
     Route: 065
  4. ALENDRONATE SODIUM [Suspect]
     Route: 048
  5. CALCIUM [Concomitant]
     Dosage: 1200 MG/DAY
     Route: 065
  6. COLECALCIFEROL [Concomitant]
     Dosage: 800 UNITS/DAY
     Route: 065
  7. PREDNISOLONE [Suspect]
     Dosage: 5 MG/DAY
     Route: 048
  8. FOLIC ACID [Concomitant]
     Route: 065

REACTIONS (3)
  - ATYPICAL FEMUR FRACTURE [None]
  - TIBIA FRACTURE [None]
  - FEMORAL NECK FRACTURE [None]
